FAERS Safety Report 6638754-6 (Version None)
Quarter: 2010Q1

REPORT INFORMATION
  Report Type: 
  Country: None (occurrence: None)
  Receive Date: 20100317
  Receipt Date: 20100303
  Transmission Date: 20100710
  Serious: Yes (Other)
  Sender: FDA-Public Use
  Company Number: US-MYLANLABS-2010S1003524

PATIENT
  Age: 28 Year
  Sex: Male

DRUGS (6)
  1. VORICONAZOLE [Suspect]
     Route: 065
  2. PREDNISONE [Suspect]
     Route: 065
  3. SIROLIMUS [Suspect]
     Route: 065
  4. TACROLIMUS [Suspect]
     Route: 065
  5. MYCOPHENOLATE MOFETIL [Suspect]
     Route: 065
  6. DAPSONE [Concomitant]
     Route: 065

REACTIONS (2)
  - PHOTOSENSITIVITY REACTION [None]
  - SQUAMOUS CELL CARCINOMA [None]
